FAERS Safety Report 16329262 (Version 1)
Quarter: 2019Q2

REPORT INFORMATION
  Report Type: Spontaneous
  Country: US (occurrence: US)
  Receive Date: 20190520
  Receipt Date: 20190520
  Transmission Date: 20190711
  Serious: No
  Sender: FDA-Public Use
  Company Number: US-BION-007598

PATIENT
  Age: 33 Year
  Sex: Male
  Weight: 62 kg

DRUGS (1)
  1. MOTRIN IB [Suspect]
     Active Substance: IBUPROFEN
     Indication: HEADACHE
     Dosage: STRENGTH: 200 MG
     Route: 048
     Dates: start: 20181210

REACTIONS (1)
  - Expired product administered [Not Recovered/Not Resolved]
